FAERS Safety Report 18129223 (Version 4)
Quarter: 2020Q4

REPORT INFORMATION
  Report Type: Report from Study
  Country: US (occurrence: US)
  Receive Date: 20200810
  Receipt Date: 20201216
  Transmission Date: 20210113
  Serious: Yes (Hospitalization)
  Sender: FDA-Public Use
  Company Number: US-PUMA BIOTECHNOLOGY, LTD.-2020US003407

PATIENT

DRUGS (4)
  1. NERLYNX [Suspect]
     Active Substance: NERATINIB
     Indication: BREAST CANCER FEMALE
     Dosage: 6 TABLETS (240 MG), DAILY
     Route: 048
     Dates: start: 20200611, end: 20200716
  2. IMODIUM [Concomitant]
     Active Substance: LOPERAMIDE HYDROCHLORIDE
     Indication: PROPHYLAXIS AGAINST DIARRHOEA
  3. NERLYNX [Suspect]
     Active Substance: NERATINIB
     Dosage: 6 TABLETS (240 MG), DAILY
     Route: 048
     Dates: start: 2020, end: 202012
  4. NERLYNX [Suspect]
     Active Substance: NERATINIB
     Dosage: 6 TABLETS (240 MG), DAILY
     Route: 048
     Dates: start: 202012

REACTIONS (3)
  - Seroma [Unknown]
  - Cerebrovascular accident [Recovering/Resolving]
  - Diarrhoea [Unknown]

NARRATIVE: CASE EVENT DATE: 202006
